FAERS Safety Report 10859176 (Version 1)
Quarter: 2015Q1

REPORT INFORMATION
  Report Type: Spontaneous
  Country: US (occurrence: US)
  Receive Date: 20150223
  Receipt Date: 20150223
  Transmission Date: 20150721
  Serious: Yes (Hospitalization)
  Sender: FDA-Public Use
  Company Number: US-CELGENEUS-163-21880-14091323

PATIENT
  Age: 82 Year
  Sex: Female
  Weight: 68.1 kg

DRUGS (5)
  1. JANUVIA [Concomitant]
     Active Substance: SITAGLIPTIN PHOSPHATE
     Indication: DIABETES MELLITUS
     Route: 065
     Dates: start: 20140804
  2. REVLIMID [Suspect]
     Active Substance: LENALIDOMIDE
     Indication: PLASMA CELL MYELOMA
     Dosage: 5 MILLIGRAM
     Route: 048
     Dates: start: 20140516, end: 20140804
  3. TRICOR [Concomitant]
     Active Substance: FENOFIBRATE
     Indication: BLOOD CHOLESTEROL
     Route: 065
     Dates: start: 20140804
  4. WARFARIN [Concomitant]
     Active Substance: WARFARIN
     Indication: ANTICOAGULANT THERAPY
     Route: 065
     Dates: start: 20140804
  5. POTASSIUM [Concomitant]
     Active Substance: POTASSIUM
     Indication: BLOOD POTASSIUM DECREASED
     Route: 065
     Dates: start: 20140804

REACTIONS (2)
  - Blood potassium decreased [Recovered/Resolved]
  - Exfoliative rash [Recovered/Resolved]

NARRATIVE: CASE EVENT DATE: 20140802
